FAERS Safety Report 8191122-0 (Version None)
Quarter: 2012Q1

REPORT INFORMATION
  Report Type: 
  Country: None (occurrence: None)
  Receive Date: 20120307
  Receipt Date: 20120215
  Transmission Date: 20120608
  Serious: Yes (Other)
  Sender: FDA-Public Use
  Company Number: JP-GLAXOSMITHKLINE-B0782255A

PATIENT
  Sex: Male
  Weight: 61 kg

DRUGS (7)
  1. VALGANCICLOVIR [Concomitant]
     Dosage: 900MG PER DAY
     Route: 048
     Dates: start: 20120118, end: 20120215
  2. VALTREX [Suspect]
     Indication: HERPES ZOSTER
     Dosage: 3000MG PER DAY
     Route: 048
     Dates: start: 20120201
  3. VELCADE [Concomitant]
  4. LANSOPRAZOLE [Concomitant]
     Dosage: 15MG PER DAY
     Route: 048
     Dates: start: 20111221
  5. VFEND [Concomitant]
     Dosage: 600MG PER DAY
     Route: 048
     Dates: start: 20120208
  6. COTRIM [Concomitant]
     Dosage: 1IUAX PER DAY
     Route: 048
     Dates: start: 20111221
  7. GABAPENTIN [Concomitant]
     Dosage: 600MG PER DAY
     Route: 048
     Dates: start: 20111219, end: 20120227

REACTIONS (8)
  - BLOOD BILIRUBIN INCREASED [None]
  - BLOOD ALKALINE PHOSPHATASE INCREASED [None]
  - LIVER DISORDER [None]
  - AMYLASE INCREASED [None]
  - ASPARTATE AMINOTRANSFERASE INCREASED [None]
  - ALANINE AMINOTRANSFERASE INCREASED [None]
  - GAMMA-GLUTAMYLTRANSFERASE INCREASED [None]
  - BLOOD LACTATE DEHYDROGENASE INCREASED [None]
